FAERS Safety Report 7435949-9 (Version None)
Quarter: 2011Q2

REPORT INFORMATION
  Report Type: 
  Country: None (occurrence: None)
  Receive Date: 20110425
  Receipt Date: 20110419
  Transmission Date: 20111010
  Serious: Yes (Death)
  Sender: FDA-Public Use
  Company Number: CH-ASTRAZENECA-2011SE22443

PATIENT
  Age: 61 Year
  Sex: Male

DRUGS (10)
  1. DAFALGAN [Concomitant]
  2. PRAZINE [Suspect]
     Indication: BIPOLAR DISORDER
     Route: 048
     Dates: start: 20110121
  3. TEMESTA [Concomitant]
     Indication: DEPRESSION
     Route: 048
  4. SEROQUEL [Suspect]
     Dosage: 400 MG TWICE A DAY IN THE EVENING
     Route: 048
     Dates: start: 20110114
  5. SEROQUEL [Suspect]
     Route: 048
     Dates: start: 20110118
  6. DEPAKENE [Concomitant]
     Indication: BIPOLAR I DISORDER
     Dosage: 1000-0-500 MG DAILY
     Route: 048
  7. BUSCOPAN [Concomitant]
     Indication: ABDOMINAL PAIN
     Route: 048
     Dates: start: 20110205
  8. SEROQUEL [Suspect]
     Indication: BIPOLAR I DISORDER
     Route: 048
  9. SEROQUEL [Suspect]
     Route: 048
  10. STILNOX [Concomitant]

REACTIONS (2)
  - SUDDEN CARDIAC DEATH [None]
  - DRUG LEVEL INCREASED [None]
